FAERS Safety Report 7053076-X (Version None)
Quarter: 2010Q4

REPORT INFORMATION
  Report Type: 
  Country: None (occurrence: None)
  Receive Date: 20101020
  Receipt Date: 20101019
  Transmission Date: 20110411
  Serious: Yes (Death)
  Sender: FDA-Public Use
  Company Number: FR-JNJFOC-20100601949

PATIENT
  Sex: Female
  Weight: 78 kg

DRUGS (6)
  1. DURAGESIC-100 [Suspect]
     Indication: CANCER PAIN
     Route: 062
  2. DURAGESIC-100 [Suspect]
     Dosage: 1 MONTH
     Route: 062
  3. DURAGESIC-100 [Suspect]
     Dosage: OVER A PERIOD OF 1.5 MONTHS
     Route: 062
  4. TRAMADOL [Suspect]
     Indication: PRODUCT USED FOR UNKNOWN INDICATION
     Route: 048
  5. IXPRIM [Concomitant]
     Indication: PRODUCT USED FOR UNKNOWN INDICATION
     Route: 065
  6. EFFENTORA [Concomitant]
     Indication: CANCER PAIN
     Route: 048

REACTIONS (3)
  - APHASIA [None]
  - CONFUSIONAL STATE [None]
  - LUNG CANCER METASTATIC [None]
